FAERS Safety Report 16789357 (Version 1)
Quarter: 2019Q3

REPORT INFORMATION
  Report Type: Spontaneous
  Country: US (occurrence: US)
  Receive Date: 20190910
  Receipt Date: 20190910
  Transmission Date: 20191005
  Serious: Yes (Hospitalization, Other)
  Sender: FDA-Public Use
  Company Number: US-AUROBINDO-AUR-APL-2019-058854

PATIENT

DRUGS (9)
  1. HYDROMORPHONE [Concomitant]
     Active Substance: HYDROMORPHONE
     Indication: HEADACHE
     Dosage: 1 MILLIGRAM
     Route: 065
  2. MOTRIN [Concomitant]
     Active Substance: IBUPROFEN
     Indication: PRODUCT USED FOR UNKNOWN INDICATION
     Dosage: 600 MILLIGRAM EVERY 6 HOURS
     Route: 065
  3. FIORICET [Suspect]
     Active Substance: ACETAMINOPHEN\BUTALBITAL\CAFFEINE
     Indication: HEADACHE
     Dosage: 2 DOSAGE FORM, FOUR TIMES/DAY ( 2 TABLETS EVERY 6 HOURS FOR 3 DAYS)
     Route: 065
  4. DIPHENHYDRAMINE. [Concomitant]
     Active Substance: DIPHENHYDRAMINE
     Indication: HEADACHE
     Dosage: 25 MILLIGRAM
     Route: 065
  5. DULOXETINE. [Suspect]
     Active Substance: DULOXETINE
     Indication: ANXIETY
     Dosage: 60 MILLIGRAM
     Route: 065
  6. METOCLOPRAMIDE. [Concomitant]
     Active Substance: METOCLOPRAMIDE
     Indication: PRODUCT USED FOR UNKNOWN INDICATION
     Dosage: 10 MILLIGRAM EVERY 8 HOURS
     Route: 065
  7. KETOROLAC [Concomitant]
     Active Substance: KETOROLAC TROMETHAMINE
     Indication: HEADACHE
     Dosage: 30 MILLIGRAM
     Route: 065
  8. ACETAMINOPHEN. [Concomitant]
     Active Substance: ACETAMINOPHEN
     Indication: HEADACHE
     Dosage: 650 MILLIGRAM
     Route: 065
  9. TRAMADOL. [Concomitant]
     Active Substance: TRAMADOL
     Indication: HEADACHE
     Dosage: 50 MILLIGRAM
     Route: 065

REACTIONS (12)
  - Headache [Unknown]
  - Seizure like phenomena [Unknown]
  - Vitreous floaters [Unknown]
  - Hallucination, visual [Unknown]
  - Brain oedema [Recovered/Resolved]
  - Gait disturbance [Unknown]
  - Posterior reversible encephalopathy syndrome [Unknown]
  - Drug interaction [Unknown]
  - Visual field defect [Unknown]
  - Blood pressure increased [Recovered/Resolved]
  - Cognitive disorder [Unknown]
  - Paraesthesia [Unknown]
